FAERS Safety Report 7250000-1 (Version None)
Quarter: 2011Q1

REPORT INFORMATION
  Report Type: 
  Country: None (occurrence: None)
  Receive Date: 20110128
  Receipt Date: 20110121
  Transmission Date: 20110831
  Serious: Yes (Hospitalization)
  Sender: FDA-Public Use
  Company Number: US-SANOFI-AVENTIS-2011SA004192

PATIENT
  Age: 75 Year
  Sex: Female

DRUGS (3)
  1. AMIODARONE [Concomitant]
  2. ASPIRIN [Concomitant]
  3. MULTAQ [Suspect]
     Indication: ATRIAL FIBRILLATION
     Route: 048
     Dates: start: 20100101

REACTIONS (5)
  - PAIN IN EXTREMITY [None]
  - MUSCLE SPASMS [None]
  - PAIN [None]
  - ATRIAL FIBRILLATION [None]
  - INCORRECT DOSE ADMINISTERED [None]
